APPROVED DRUG PRODUCT: PACLITAXEL
Active Ingredient: PACLITAXEL
Strength: 6MG/ML
Dosage Form/Route: INJECTABLE;INJECTION
Application: A205720 | Product #001 | TE Code: AP
Applicant: ACCORD HEALTHCARE INC
Approved: Aug 17, 2018 | RLD: No | RS: No | Type: RX